FAERS Safety Report 13152212 (Version 1)
Quarter: 2017Q1

REPORT INFORMATION
  Report Type: Spontaneous
  Country: JP (occurrence: JP)
  Receive Date: 20170125
  Receipt Date: 20170125
  Transmission Date: 20170428
  Serious: Yes (Hospitalization)
  Sender: FDA-Public Use
  Company Number: JP-SA-2017SA010803

PATIENT
  Sex: Female

DRUGS (5)
  1. LEVOFOLINATE [Concomitant]
     Active Substance: LEVOLEUCOVORIN CALCIUM
     Route: 042
     Dates: start: 20161201, end: 20161201
  2. 5 FU [Concomitant]
     Active Substance: FLUOROURACIL
     Route: 040
     Dates: start: 20161201, end: 20161201
  3. IRINOTECAN HYDROCHLORIDE. [Concomitant]
     Active Substance: IRINOTECAN HYDROCHLORIDE
     Route: 042
     Dates: start: 20161201, end: 20161201
  4. ELPLAT [Suspect]
     Active Substance: OXALIPLATIN
     Indication: PANCREATIC CARCINOMA
     Route: 042
     Dates: start: 20161201, end: 20161201
  5. FLUOROURACIL W/OXALIPLATIN [Concomitant]
     Route: 042
     Dates: start: 20161201, end: 20161201

REACTIONS (3)
  - Hyponatraemia [Recovering/Resolving]
  - Akathisia [Recovering/Resolving]
  - Neutrophil count decreased [Unknown]

NARRATIVE: CASE EVENT DATE: 20161226
